FAERS Safety Report 25991471 (Version 1)
Quarter: 2025Q4

REPORT INFORMATION
  Report Type: Spontaneous
  Country: US (occurrence: US)
  Receive Date: 20251103
  Receipt Date: 20251103
  Transmission Date: 20260117
  Serious: No
  Sender: SANOFI AVENTIS
  Company Number: US-SA-2025SA319668

PATIENT
  Sex: Female
  Weight: 105.6 kg

DRUGS (36)
  1. DUPIXENT [Suspect]
     Active Substance: DUPILUMAB
     Indication: Dermatitis atopic
     Dosage: 300 MG, QOW
     Route: 058
  2. AZITHROMYCIN [Concomitant]
     Active Substance: AZITHROMYCIN
  3. KETOCONAZOLE [Concomitant]
     Active Substance: KETOCONAZOLE
  4. METROGEL [Concomitant]
     Active Substance: METRONIDAZOLE
  5. BETAMETHASONE VALERATE [Concomitant]
     Active Substance: BETAMETHASONE VALERATE
  6. BUSPIRONE HCL [Concomitant]
     Active Substance: BUSPIRONE HYDROCHLORIDE
  7. INOSITOL [Concomitant]
     Active Substance: INOSITOL
  8. MAGNESIUM OXIDE [Concomitant]
     Active Substance: MAGNESIUM OXIDE
  9. NIACIN [Concomitant]
     Active Substance: NIACIN
  10. THIAMINE HYDROCHLORIDE [Concomitant]
     Active Substance: THIAMINE HYDROCHLORIDE
     Dosage: UNK
  11. BIOTIN [Concomitant]
     Active Substance: BIOTIN
     Dosage: UNK
  12. BUDESONIDE [Concomitant]
     Active Substance: BUDESONIDE
     Dosage: UNK
  13. CHROMIUM PICOLINATE [Concomitant]
     Active Substance: CHROMIUM PICOLINATE
  14. COREG [Concomitant]
     Active Substance: CARVEDILOL
     Dosage: UNK
  15. REPATHA [Concomitant]
     Active Substance: EVOLOCUMAB
     Dosage: UNK
  16. MOUNJARO [Concomitant]
     Active Substance: TIRZEPATIDE
  17. TRETINOIN [Concomitant]
     Active Substance: TRETINOIN
  18. LIDOCAINE [Concomitant]
     Active Substance: LIDOCAINE
  19. CYANOCOBALAMIN [Concomitant]
     Active Substance: CYANOCOBALAMIN
  20. ALLOPURINOL [Concomitant]
     Active Substance: ALLOPURINOL
  21. TRAZODONE HCL [Concomitant]
     Active Substance: TRAZODONE HYDROCHLORIDE
  22. ZOLPIDEM TARTRATE [Concomitant]
     Active Substance: ZOLPIDEM TARTRATE
  23. ADEMPAS [Concomitant]
     Active Substance: RIOCIGUAT
  24. OPSUMIT [Concomitant]
     Active Substance: MACITENTAN
  25. SINGULAIR [Concomitant]
     Active Substance: MONTELUKAST SODIUM
  26. LEXAPRO [Concomitant]
     Active Substance: ESCITALOPRAM OXALATE
  27. SOTALOL [Concomitant]
     Active Substance: SOTALOL
  28. CARVEDILOL [Concomitant]
     Active Substance: CARVEDILOL
  29. ENTRESTO [Concomitant]
     Active Substance: SACUBITRIL\VALSARTAN
  30. TRICOR [Concomitant]
     Active Substance: FENOFIBRATE
  31. TORSEMIDE [Concomitant]
     Active Substance: TORSEMIDE
  32. VITAMIN B [Concomitant]
     Active Substance: VITAMIN B
  33. VITAMIN A [Concomitant]
     Active Substance: VITAMIN A
  34. VITAMIN C [Concomitant]
     Active Substance: ASCORBIC ACID
  35. SPIRONOLACTONE [Concomitant]
     Active Substance: SPIRONOLACTONE
  36. VITAMIN D [Concomitant]
     Active Substance: VITAMIN D NOS

REACTIONS (2)
  - Accidental exposure to product [Unknown]
  - Exposure via skin contact [Unknown]
